FAERS Safety Report 23766181 (Version 6)
Quarter: 2024Q3

REPORT INFORMATION
  Report Type: Spontaneous
  Country: JP (occurrence: JP)
  Receive Date: 20240422
  Receipt Date: 20240925
  Transmission Date: 20241016
  Serious: Yes (Hospitalization, Other)
  Sender: GLAXOSMITHKLINE
  Company Number: JP-GSKJP-JP2024JPN048273AA

PATIENT

DRUGS (40)
  1. DAPRODUSTAT [Suspect]
     Active Substance: DAPRODUSTAT
     Indication: Nephrogenic anaemia
     Dosage: UNK
  2. DAPRODUSTAT [Suspect]
     Active Substance: DAPRODUSTAT
     Dosage: 4 MG, 1D
     Route: 048
     Dates: start: 20231114, end: 20240402
  3. DAPRODUSTAT [Suspect]
     Active Substance: DAPRODUSTAT
     Dosage: 6 MG, 1D
     Route: 048
     Dates: start: 20240403, end: 20240430
  4. DAPRODUSTAT [Suspect]
     Active Substance: DAPRODUSTAT
     Dosage: 8 MG, 1D
     Route: 048
     Dates: start: 20240501, end: 20240528
  5. CLOPIDOGREL [Concomitant]
     Active Substance: CLOPIDOGREL BISULFATE
     Indication: Thrombosis prophylaxis
     Dosage: 75 MG, 1D
     Route: 048
     Dates: start: 20231114
  6. BISOPROLOL [Concomitant]
     Active Substance: BISOPROLOL\BISOPROLOL FUMARATE
     Indication: Cardiac failure chronic
     Dosage: 2.5 MG
  7. BISOPROLOL [Concomitant]
     Active Substance: BISOPROLOL\BISOPROLOL FUMARATE
     Dosage: 1.25 MG, 1D
     Route: 048
     Dates: start: 20231114
  8. FUROSEMIDE [Concomitant]
     Active Substance: FUROSEMIDE
     Indication: Cardiac failure chronic
     Dosage: 20 MG, 1D
     Route: 048
     Dates: start: 20231116
  9. ALDACTONE [Concomitant]
     Active Substance: SPIRONOLACTONE
     Indication: Cardiac failure chronic
     Dosage: 25 MG, 1D
     Route: 048
     Dates: start: 20231116
  10. AMLODIPINE [Concomitant]
     Active Substance: AMLODIPINE BESYLATE
     Indication: Hypertension
     Dosage: 2.5 MG
  11. AMLODIPINE [Concomitant]
     Active Substance: AMLODIPINE BESYLATE
     Dosage: 5 MG, 1D
     Route: 048
     Dates: start: 20231114
  12. LINAGLIPTIN [Concomitant]
     Active Substance: LINAGLIPTIN
     Indication: Type 2 diabetes mellitus
     Dosage: 5 MG, 1D
     Route: 048
     Dates: start: 20231116
  13. JARDIANCE [Concomitant]
     Active Substance: EMPAGLIFLOZIN
     Indication: Type 2 diabetes mellitus
     Dosage: 10 MG, 1D
     Route: 048
     Dates: start: 20231114
  14. GLIMEPIRIDE [Concomitant]
     Active Substance: GLIMEPIRIDE
     Indication: Type 2 diabetes mellitus
     Dosage: 0.5 MG, 1D
     Route: 048
     Dates: start: 20231114
  15. ALFACALCIDOL [Concomitant]
     Active Substance: ALFACALCIDOL
     Indication: Osteoporosis
     Dosage: 1.0 UG, 1D
     Route: 048
     Dates: start: 20231116
  16. LANSOPRAZOLE [Concomitant]
     Active Substance: LANSOPRAZOLE
     Indication: Gastrooesophageal reflux disease
     Dosage: 15 MG, 1D
     Route: 048
     Dates: start: 20231116
  17. TOLVAPTAN [Concomitant]
     Active Substance: TOLVAPTAN
     Indication: Inappropriate antidiuretic hormone secretion
     Dosage: 7.5 MG, 1D
     Route: 048
     Dates: start: 20231114
  18. HERBALS [Concomitant]
     Active Substance: HERBALS
     Indication: Dementia
     Dosage: 2.5 G, BID
     Route: 048
     Dates: start: 20231113, end: 20231127
  19. LASIX [Concomitant]
     Active Substance: FUROSEMIDE
     Indication: Cardiac failure chronic
     Dosage: 20 MG, 1D
     Route: 048
     Dates: start: 20231114, end: 20231115
  20. SPIRONOLACTONE [Concomitant]
     Active Substance: SPIRONOLACTONE
     Indication: Cardiac failure chronic
     Dosage: 25 MG, 1D
     Route: 048
     Dates: start: 20231114, end: 20231115
  21. VONOPRAZAN FUMARATE [Concomitant]
     Active Substance: VONOPRAZAN FUMARATE
     Indication: Gastrooesophageal reflux disease
     Dosage: 10 MG, 1D
     Route: 048
     Dates: start: 20231114, end: 20231115
  22. SODIUM FERROUS CITRATE [Concomitant]
     Active Substance: SODIUM FERROUS CITRATE
     Indication: Iron deficiency anaemia
     Dosage: 100 MG, 1D
     Route: 048
     Dates: start: 20231114, end: 20231115
  23. ROCALTROL [Concomitant]
     Active Substance: CALCITRIOL
     Indication: Osteoporosis
     Dosage: 0.25 ?G, 1D
     Route: 048
     Dates: start: 20231114, end: 20231115
  24. VILDAGLIPTIN [Concomitant]
     Active Substance: VILDAGLIPTIN
     Indication: Type 2 diabetes mellitus
     Dosage: 100 MG, BID
     Route: 048
     Dates: start: 20231114, end: 20231115
  25. Febric [Concomitant]
     Indication: Gout
     Dosage: 20 MG, 1D
     Route: 048
     Dates: start: 20231113, end: 20231115
  26. FERROUS SULFATE [Concomitant]
     Active Substance: FERROUS SULFATE
     Indication: Iron deficiency anaemia
     Dosage: 105 MG, 1D
     Route: 048
     Dates: start: 20231116
  27. ENTRESTO [Concomitant]
     Active Substance: SACUBITRIL\VALSARTAN
     Indication: Cardiac failure chronic
     Dosage: 200 MG, 1D
     Route: 048
     Dates: start: 20231113
  28. FEBUXOSTAT [Concomitant]
     Active Substance: FEBUXOSTAT
     Indication: Gout
     Dosage: 20 MG, 1D
     Route: 048
     Dates: start: 20231116
  29. FELBINAC [Concomitant]
     Active Substance: FELBINAC
     Indication: Osteoarthritis
     Dosage: ADMINISTERED SEVERAL TIMES A DAY
     Route: 050
     Dates: start: 20231113
  30. HYALURONATE SODIUM [Concomitant]
     Active Substance: HYALURONATE SODIUM
     Indication: Xerophthalmia
     Dosage: ADMINISTERED 5 TO 6 TIMES A DAY
     Route: 047
     Dates: start: 20231115
  31. HERBALS [Concomitant]
     Active Substance: HERBALS
     Indication: Nasopharyngitis
     Dosage: 2.5 G, TID
     Route: 048
     Dates: start: 20231220, end: 20231220
  32. LAGEVRIO [Concomitant]
     Active Substance: MOLNUPIRAVIR
     Indication: COVID-19
     Dosage: 800 MG, BID
     Route: 048
     Dates: start: 20240211, end: 20240215
  33. HERBALS [Concomitant]
     Active Substance: HERBALS
     Indication: Constipation
     Dosage: 2.5 G, BID
     Route: 048
     Dates: start: 20240408
  34. SENNOSIDES [Concomitant]
     Active Substance: SENNOSIDES
     Indication: Constipation
     Dosage: 24 MG, 1D
     Route: 048
     Dates: start: 20231115
  35. UREA [Concomitant]
     Active Substance: UREA
     Indication: Xeroderma
     Dosage: UNK, 1D
     Route: 050
     Dates: start: 20231120
  36. WHITE PETROLATUM [Concomitant]
     Active Substance: PETROLATUM
     Indication: Dry skin prophylaxis
     Dosage: 2 G
     Route: 050
     Dates: start: 20231227, end: 20231227
  37. LOXOPROFEN [Concomitant]
     Active Substance: LOXOPROFEN
     Indication: Osteoarthritis
     Dosage: UNK
     Route: 050
     Dates: start: 20240107, end: 20240107
  38. SODIUM BICARBONATE\SODIUM PHOSPHATE, MONOBASIC [Concomitant]
     Active Substance: SODIUM BICARBONATE\SODIUM PHOSPHATE, MONOBASIC
     Indication: Constipation
     Dosage: 1 PIECE, 1D
     Dates: start: 20231118
  39. SOLDEM 3A [Concomitant]
     Active Substance: CARBOHYDRATES\POTASSIUM CHLORIDE\SODIUM CHLORIDE\SODIUM LACTATE
     Indication: Hypophagia
     Dosage: 500 ML, 1D
     Route: 041
     Dates: start: 20240115, end: 20240115
  40. GLYCERIN [Concomitant]
     Active Substance: GLYCERIN
     Indication: Constipation
     Dosage: 30 G, 1D
     Route: 054
     Dates: start: 20240408, end: 20240408

REACTIONS (7)
  - Mental disorder [Recovering/Resolving]
  - Hallucination [Recovering/Resolving]
  - Paranoia [Recovering/Resolving]
  - Persecutory delusion [Recovering/Resolving]
  - Haemoglobin decreased [Not Recovered/Not Resolved]
  - Therapeutic response decreased [Unknown]
  - Product use issue [Unknown]

NARRATIVE: CASE EVENT DATE: 20180101
